FAERS Safety Report 8598659-0 (Version None)
Quarter: 2012Q3

REPORT INFORMATION
  Report Type: 
  Country: None (occurrence: None)
  Receive Date: 20120816
  Receipt Date: 19931101
  Transmission Date: 20120928
  Serious: Yes (Other)
  Sender: FDA-Public Use
  Company Number: US-ROCHE-1100443

PATIENT
  Age: 35 Year
  Sex: Male

DRUGS (2)
  1. MORPHINE SULFATE [Concomitant]
  2. ACTIVASE [Suspect]
     Indication: ACUTE MYOCARDIAL INFARCTION

REACTIONS (4)
  - PULMONARY OEDEMA [None]
  - BLOOD PRESSURE DECREASED [None]
  - CHEST PAIN [None]
  - ELECTROCARDIOGRAM ST SEGMENT ELEVATION [None]
